FAERS Safety Report 20394478 (Version 1)
Quarter: 2022Q1

REPORT INFORMATION
  Report Type: Spontaneous
  Country: US (occurrence: US)
  Receive Date: 20220129
  Receipt Date: 20220129
  Transmission Date: 20220423
  Serious: No
  Sender: FDA-Public Use
  Company Number: US-ELI_LILLY_AND_COMPANY-US202201010770

PATIENT
  Age: 63 Year
  Sex: Male

DRUGS (1)
  1. BASAGLAR [Suspect]
     Active Substance: INSULIN GLARGINE
     Indication: Product used for unknown indication
     Dosage: UNK UNK, UNKNOWN
     Route: 065

REACTIONS (14)
  - Memory impairment [Unknown]
  - Dysarthria [Unknown]
  - Tremor [Unknown]
  - Heart rate increased [Unknown]
  - Irritability [Unknown]
  - Hyperhidrosis [Unknown]
  - Anxiety [Unknown]
  - Hunger [Unknown]
  - Confusional state [Unknown]
  - Mood altered [Unknown]
  - Headache [Unknown]
  - Nausea [Unknown]
  - Visual impairment [Unknown]
  - Product dose omission issue [Unknown]

NARRATIVE: CASE EVENT DATE: 20211201
